FAERS Safety Report 4766262-6 (Version None)
Quarter: 2005Q3

REPORT INFORMATION
  Report Type: 
  Country: None (occurrence: None)
  Receive Date: 20050912
  Receipt Date: 20050830
  Transmission Date: 20060218
  Serious: Yes (Hospitalization)
  Sender: FDA-Public Use
  Company Number: 200516415US

PATIENT
  Sex: Female
  Weight: 63.6 kg

DRUGS (2)
  1. LANTUS [Suspect]
     Indication: DIABETES MELLITUS
     Dosage: DOSE UNIT: UNITS
     Route: 058
     Dates: start: 20021201
  2. NOVALOG [Concomitant]
     Dosage: DOSE: UNK

REACTIONS (3)
  - CARDIAC OPERATION [None]
  - FATIGUE [None]
  - REFUSAL OF TREATMENT BY PATIENT [None]
